FAERS Safety Report 16887714 (Version 15)
Quarter: 2020Q3

REPORT INFORMATION
  Report Type: Spontaneous
  Country: DE (occurrence: DE)
  Receive Date: 20191005
  Receipt Date: 20200903
  Transmission Date: 20201102
  Serious: Yes (Hospitalization, Other)
  Sender: FDA-Public Use
  Company Number: DE-AUROBINDO-AUR-APL-2019-064234

PATIENT
  Age: 71 Year
  Sex: Female
  Weight: 65 kg

DRUGS (11)
  1. BISOPROLOL [Suspect]
     Active Substance: BISOPROLOL
     Dosage: 4.24 MILLIGRAM, TWO TIMES A DAY (ONCE IN THE MORNING, ONCE IN THE EVENING )
     Route: 048
     Dates: start: 20191015, end: 20200429
  2. LETROZOLE. [Suspect]
     Active Substance: LETROZOLE
     Indication: BREAST CANCER METASTATIC
     Dosage: 2.5 MILLIGRAM, ONCE A DAY
     Route: 048
     Dates: start: 20190731
  3. RAMIPRIL. [Suspect]
     Active Substance: RAMIPRIL
     Indication: HYPERTENSION
     Dosage: 5 MILLIGRAM, TWO TIMES A DAY MORNING AND EVENING (10 MILLIGRAM, QD)
     Route: 065
     Dates: start: 20191015
  4. KISQALI [Suspect]
     Active Substance: RIBOCICLIB
     Dosage: 400 MILLIGRAM, ONCE A DAY (ADMINISTRATION SCHEME 21 DAYS INTAKE, 7 DAYS PAUSE)
     Route: 048
     Dates: start: 20200506
  5. BISOPROLOL [Suspect]
     Active Substance: BISOPROLOL
     Indication: HYPERTENSION
     Dosage: 5 MILLIGRAM, ONCE A DAY, (MORNING)
     Route: 065
     Dates: start: 2012
  6. LEVOTHYROXINE. [Concomitant]
     Active Substance: LEVOTHYROXINE
     Indication: PRODUCT USED FOR UNKNOWN INDICATION
     Dosage: 125 MILLIGRAM, ONCE A DAY,(MORNING)
     Route: 065
  7. RAMIPRIL. [Suspect]
     Active Substance: RAMIPRIL
     Indication: HYPERTENSIVE CRISIS
     Dosage: 5 MILLIGRAM, ONCE A DAY (MORNING)
     Route: 065
     Dates: start: 2012
  8. KISQALI [Suspect]
     Active Substance: RIBOCICLIB
     Dosage: 400 MILLIGRAM, ONCE A DAY (ADMINISTRATION SCHEME 21 DAYS INTAKE, 7 DAYS PAUSE)
     Route: 048
     Dates: start: 20190822, end: 20200429
  9. RAMIPRIL. [Suspect]
     Active Substance: RAMIPRIL
     Dosage: 5 MILLIGRAM, ONCE A DAY (ONCE IN THE MORNING )
     Route: 048
     Dates: start: 20200324
  10. KISQALI [Suspect]
     Active Substance: RIBOCICLIB
     Indication: BREAST CANCER METASTATIC
     Dosage: 600 MILLIGRAM, ONCE A DAY (ADMINISTRATION SCHEME 21 DAYS INTAKE, 7 DAYS PAUSE)
     Route: 048
     Dates: start: 20190731, end: 20190808
  11. AMLODIPINE [Concomitant]
     Active Substance: AMLODIPINE BESYLATE
     Indication: PRODUCT USED FOR UNKNOWN INDICATION
     Dosage: UNK
     Route: 065

REACTIONS (21)
  - Tachycardia [Recovered/Resolved]
  - Supraventricular tachyarrhythmia [Unknown]
  - Hypertensive crisis [Recovering/Resolving]
  - Diastolic dysfunction [Recovered/Resolved]
  - Atrial fibrillation [Recovered/Resolved]
  - Sinus arrhythmia [Unknown]
  - Renal failure [Recovering/Resolving]
  - Mitral valve incompetence [Recovering/Resolving]
  - Cardiac valve sclerosis [Recovering/Resolving]
  - Diarrhoea [Recovered/Resolved]
  - Blood pressure increased [Not Recovered/Not Resolved]
  - International normalised ratio decreased [Recovered/Resolved]
  - Atrioventricular block first degree [Unknown]
  - Rotavirus infection [Recovered/Resolved]
  - Intervertebral disc protrusion [Recovered/Resolved]
  - Nausea [Recovered/Resolved]
  - Vomiting [Recovered/Resolved]
  - Fatigue [Not Recovered/Not Resolved]
  - Tricuspid valve incompetence [Recovering/Resolving]
  - Pyrexia [Recovered/Resolved]
  - Rash [Recovered/Resolved]

NARRATIVE: CASE EVENT DATE: 20190809
